FAERS Safety Report 25840477 (Version 1)
Quarter: 2025Q3

REPORT INFORMATION
  Report Type: Spontaneous
  Country: EU (occurrence: EU)
  Receive Date: 20250924
  Receipt Date: 20250924
  Transmission Date: 20251020
  Serious: Yes (Hospitalization, Other)
  Sender: BIOVITRUM
  Company Number: EU-BIOVITRUM-2025-PT-012936

PATIENT
  Age: 15 Year
  Sex: Female

DRUGS (5)
  1. EMAPALUMAB [Suspect]
     Active Substance: EMAPALUMAB
     Indication: Haemophagocytic lymphohistiocytosis
  2. ANAKINRA [Suspect]
     Active Substance: ANAKINRA
     Indication: Haemophagocytic lymphohistiocytosis
     Route: 042
  3. ANAKINRA [Suspect]
     Active Substance: ANAKINRA
     Route: 058
  4. CYCLOSPORINE [Suspect]
     Active Substance: CYCLOSPORINE
     Indication: Product used for unknown indication
  5. RUXOLITINIB [Suspect]
     Active Substance: RUXOLITINIB
     Indication: Product used for unknown indication

REACTIONS (5)
  - Microangiopathy [Unknown]
  - Hepatotoxicity [Unknown]
  - Cytomegalovirus infection [Unknown]
  - Injection site reaction [Unknown]
  - Off label use [Unknown]
